FAERS Safety Report 8909614 (Version 2)
Quarter: 2012Q4

REPORT INFORMATION
  Report Type: 
  Country: US (occurrence: US)
  Receive Date: 20121115
  Receipt Date: 20121128
  Transmission Date: 20130627
  Serious: No
  Sender: FDA-Public Use
  Company Number: US-VERTEX PHARMACEUTICAL INC.-2012-024484

PATIENT
  Sex: Male
  Weight: 83 kg

DRUGS (6)
  1. VX-950 (TELAPREVIR) [Suspect]
     Indication: HEPATITIS C
     Dosage: 750 mg, tid
     Route: 048
     Dates: start: 20121102
  2. RIBASPHERE [Concomitant]
     Indication: HEPATITIS C
     Dosage: UNK
     Dates: start: 20121102
  3. PEGASYS [Concomitant]
     Indication: HEPATITIS C
     Dosage: UNK
     Dates: start: 20121102
  4. AMBIEN [Concomitant]
     Dosage: UNK mg, UNK
  5. CRESTOR [Concomitant]
     Dosage: 5 UNK, UNK
  6. ULTRAM [Concomitant]

REACTIONS (3)
  - Influenza like illness [Not Recovered/Not Resolved]
  - Fatigue [Not Recovered/Not Resolved]
  - Nausea [Unknown]
